FAERS Safety Report 11299611 (Version 1)
Quarter: 2015Q3

REPORT INFORMATION
  Report Type: Spontaneous
  Country: US (occurrence: US)
  Receive Date: 20150722
  Receipt Date: 20150722
  Transmission Date: 20151125
  Serious: No
  Sender: FDA-Public Use
  Company Number: US-ELI_LILLY_AND_COMPANY-US201301010104

PATIENT
  Sex: Female

DRUGS (2)
  1. EXENATIDE [Concomitant]
     Active Substance: EXENATIDE
     Dosage: UNK, WEEKLY (1/W)
  2. HUMATROPE [Suspect]
     Active Substance: SOMATROPIN
     Indication: HYPOTHALAMO-PITUITARY DISORDER
     Dosage: 0.4 MG, QD

REACTIONS (2)
  - Memory impairment [Unknown]
  - Pneumonia [Unknown]
